FAERS Safety Report 7956565-6 (Version None)
Quarter: 2011Q4

REPORT INFORMATION
  Report Type: 
  Country: None (occurrence: None)
  Receive Date: 20111205
  Receipt Date: 20111123
  Transmission Date: 20120403
  Serious: Yes (Life-Threatening, Hospitalization)
  Sender: FDA-Public Use
  Company Number: US-JNJFOC-20110901895

PATIENT
  Sex: Female
  Weight: 76.89 kg

DRUGS (17)
  1. PREDNISONE [Concomitant]
     Indication: COLITIS ULCERATIVE
     Dates: start: 20110610
  2. PREDNISONE [Concomitant]
     Dates: end: 20110301
  3. EXTRA STRENGTH TYLENOL [Concomitant]
     Indication: PAIN
  4. ASACOL [Concomitant]
     Dates: start: 20110201
  5. IMURAN [Concomitant]
     Indication: COLITIS ULCERATIVE
     Dates: start: 20110122
  6. REMICADE [Suspect]
     Route: 042
     Dates: start: 20110628
  7. CLINDAMYCIN [Concomitant]
     Indication: PRODUCT USED FOR UNKNOWN INDICATION
     Dates: end: 20110526
  8. REMICADE [Suspect]
     Indication: COLITIS ULCERATIVE
     Route: 042
     Dates: start: 20110801
  9. IBUPROFEN [Concomitant]
     Indication: PAIN
  10. REMICADE [Suspect]
     Route: 042
     Dates: start: 20110210
  11. REMICADE [Suspect]
     Dosage: HAS HAD A TOTAL OF FOUR INFUSIONS
     Route: 042
     Dates: start: 20110504
  12. PREDNISONE [Concomitant]
  13. ASACOL [Concomitant]
     Dates: start: 20110122
  14. MESALAMINE [Concomitant]
     Indication: COLITIS ULCERATIVE
  15. REMICADE [Suspect]
     Route: 042
     Dates: start: 20110131
  16. PREDNISONE [Concomitant]
     Dates: start: 20110617
  17. ASACOL [Concomitant]
     Indication: COLITIS ULCERATIVE
     Dates: start: 20110301

REACTIONS (7)
  - CYSTITIS [None]
  - FEMALE GENITAL TRACT FISTULA [None]
  - NECROTISING FASCIITIS [None]
  - ILEOSTOMY [None]
  - RECTAL ABSCESS [None]
  - WEIGHT DECREASED [None]
  - COLITIS ULCERATIVE [None]
